FAERS Safety Report 4573885-6 (Version None)
Quarter: 2005Q1

REPORT INFORMATION
  Report Type: 
  Country: None (occurrence: None)
  Receive Date: 20050203
  Receipt Date: 20050103
  Transmission Date: 20050727
  Serious: Yes (Life-Threatening)
  Sender: FDA-Public Use
  Company Number: 05FRA0030

PATIENT
  Age: 66 Year
  Sex: Male

DRUGS (6)
  1. AGGRASTAT [Suspect]
     Indication: ACUTE CORONARY SYNDROME
     Dates: start: 20041204, end: 20041204
  2. CLOPIDOGREL BISULFATE [Concomitant]
  3. CLORAZEPATE DIPOTASSIUM [Concomitant]
  4. NEXIUM [Concomitant]
  5. ISOSORBIDE DINITRATE [Concomitant]
  6. ENOXAPARIN SODIUM [Concomitant]

REACTIONS (3)
  - PYREXIA [None]
  - SHOCK [None]
  - THROMBOCYTOPENIA [None]
